FAERS Safety Report 7795114-2 (Version None)
Quarter: 2011Q4

REPORT INFORMATION
  Report Type: 
  Country: None (occurrence: None)
  Receive Date: 20111004
  Receipt Date: 20110921
  Transmission Date: 20120403
  Serious: Yes (Hospitalization)
  Sender: FDA-Public Use
  Company Number: US-JNJFOC-20110810795

PATIENT
  Age: 63 Year
  Sex: Female
  Weight: 86.18 kg

DRUGS (5)
  1. INSULIN [Concomitant]
     Indication: TYPE 2 DIABETES MELLITUS
     Route: 065
  2. OTHER RESPIRATORY SYSTEM PRODUCTS [Concomitant]
     Indication: ASTHMA
     Route: 065
  3. UNSPECIFIED OVER THE COUNTER VITAMINS [Concomitant]
     Indication: MEDICAL DIET
     Route: 065
  4. ALL OTHER THERAPEUTIC PRODUCTS [Concomitant]
     Indication: HYPERTENSION
     Route: 065
  5. LISTERINE TOTAL CARE PLUS WHITENING [Suspect]
     Indication: DENTAL CARE
     Dosage: FILLED CAP ABOUT TWO TEASPOONSFUL. USED JUST ONE TIME.
     Route: 048
     Dates: start: 20110822, end: 20110822

REACTIONS (1)
  - HYPERSENSITIVITY [None]
